FAERS Safety Report 8508394-2 (Version None)
Quarter: 2012Q3

REPORT INFORMATION
  Report Type: 
  Country: None (occurrence: None)
  Receive Date: 20120713
  Receipt Date: 20120711
  Transmission Date: 20120928
  Serious: Yes (Life-Threatening)
  Sender: FDA-Public Use
  Company Number: PHHY2012DE038993

PATIENT
  Sex: Male

DRUGS (1)
  1. TOBI [Suspect]
     Dates: end: 20111201

REACTIONS (3)
  - COUGH [None]
  - POST PROCEDURAL COMPLICATION [None]
  - BRONCHIAL DISORDER [None]
